FAERS Safety Report 25154382 (Version 4)
Quarter: 2025Q3

REPORT INFORMATION
  Report Type: Report from Study
  Country: US (occurrence: US)
  Receive Date: 20250403
  Receipt Date: 20250820
  Transmission Date: 20251020
  Serious: No
  Sender: MERCK SHARP & DOHME LLC
  Company Number: US-009507513-2263576

PATIENT
  Sex: Female
  Weight: 86.183 kg

DRUGS (34)
  1. WINREVAIR [Suspect]
     Active Substance: SOTATERCEPT-CSRK
     Indication: Pulmonary arterial hypertension
     Dosage: 1.2ML EVERY 3 WEEKS
     Route: 058
     Dates: start: 2025
  2. WINREVAIR [Suspect]
     Active Substance: SOTATERCEPT-CSRK
  3. WINREVAIR [Suspect]
     Active Substance: SOTATERCEPT-CSRK
  4. WINREVAIR [Suspect]
     Active Substance: SOTATERCEPT-CSRK
  5. WINREVAIR [Suspect]
     Active Substance: SOTATERCEPT-CSRK
  6. WINREVAIR [Suspect]
     Active Substance: SOTATERCEPT-CSRK
  7. WINREVAIR [Suspect]
     Active Substance: SOTATERCEPT-CSRK
  8. WINREVAIR [Suspect]
     Active Substance: SOTATERCEPT-CSRK
  9. REMODULIN [Suspect]
     Active Substance: TREPROSTINIL
     Indication: Pulmonary arterial hypertension
     Route: 041
     Dates: start: 20210813
  10. VITAMIN D3 [Concomitant]
     Active Substance: CHOLECALCIFEROL
  11. HYDROXYZINE HYDROCHLORIDE [Concomitant]
     Active Substance: HYDROXYZINE HYDROCHLORIDE
  12. TRAZODONE HCL [Concomitant]
     Active Substance: TRAZODONE HYDROCHLORIDE
  13. POTASSIUM CHLORIDE [Concomitant]
     Active Substance: POTASSIUM CHLORIDE
  14. TERBINAFINE HYDROCHLORIDE [Concomitant]
     Active Substance: TERBINAFINE HYDROCHLORIDE
  15. TADALAFIL [Concomitant]
     Active Substance: TADALAFIL
  16. BUMETANIDE [Concomitant]
     Active Substance: BUMETANIDE
  17. BIOTIN [Concomitant]
     Active Substance: BIOTIN
  18. B12 active [Concomitant]
  19. Flonase allergy relief (fluticasone propionate) [Concomitant]
  20. Imodium a-d (loperamide hydrochloride) [Concomitant]
  21. VITAMINS [Concomitant]
     Active Substance: VITAMINS
  22. FAMOTIDINE [Concomitant]
     Active Substance: FAMOTIDINE
  23. MELATONIN [Concomitant]
     Active Substance: MELATONIN
  24. ALDACTONE [Concomitant]
     Active Substance: SPIRONOLACTONE
  25. Mucinex (guaifenesin) [Concomitant]
  26. OXYGEN [Concomitant]
     Active Substance: OXYGEN
  27. BENADRYL ALLERGY [Concomitant]
     Active Substance: DIPHENHYDRAMINE HYDROCHLORIDE
  28. NEXPLANON [Concomitant]
     Active Substance: ETONOGESTREL
  29. VIIBRYD [Concomitant]
     Active Substance: VILAZODONE HYDROCHLORIDE
  30. ACETAMINOPHEN [Concomitant]
     Active Substance: ACETAMINOPHEN
  31. Advair diskus (fluticasone propionate, salmeterol xinafoate) [Concomitant]
  32. NALTREXONE HYDROCHLORIDE [Concomitant]
     Active Substance: NALTREXONE HYDROCHLORIDE
  33. MOUNJARO [Concomitant]
     Active Substance: TIRZEPATIDE
  34. AMBRISENTAN [Concomitant]
     Active Substance: AMBRISENTAN

REACTIONS (5)
  - Chest pain [Unknown]
  - Product preparation error [Unknown]
  - Haemoglobin increased [Unknown]
  - Headache [Unknown]
  - Device issue [Unknown]

NARRATIVE: CASE EVENT DATE: 20250101
